FAERS Safety Report 5193642-X (Version None)
Quarter: 2006Q4

REPORT INFORMATION
  Report Type: 
  Country: None (occurrence: None)
  Receive Date: 20061221
  Receipt Date: 20061211
  Transmission Date: 20070319
  Serious: Yes (Other)
  Sender: FDA-Public Use
  Company Number: 2006S1000227

PATIENT
  Age: 58 Year
  Sex: Female
  Weight: 76 kg

DRUGS (9)
  1. CUBICIN [Suspect]
     Indication: CELLULITIS
     Dosage: 300 MG;Q24H;IV
     Route: 042
  2. CEFTAZIDIME [Concomitant]
  3. METHADONE HCL [Concomitant]
  4. FUROSEMIDE [Concomitant]
  5. ERTAPENEM [Concomitant]
  6. AMITRIPTYLINE HCL [Concomitant]
  7. METOCLOPRAMIDE [Concomitant]
  8. ESTRADIOL [Concomitant]
  9. DIHYDROERGOTAMINE MESYLATE [Concomitant]

REACTIONS (10)
  - ALVEOLITIS ALLERGIC [None]
  - CANDIDIASIS [None]
  - EFFUSION [None]
  - EOSINOPHILIA [None]
  - FUNGAL INFECTION [None]
  - HAEMATOCRIT DECREASED [None]
  - HAEMOGLOBIN DECREASED [None]
  - INTERSTITIAL LUNG DISEASE [None]
  - PULMONARY OEDEMA [None]
  - THERAPY NON-RESPONDER [None]
